FAERS Safety Report 8354154-5 (Version None)
Quarter: 2012Q2

REPORT INFORMATION
  Report Type: 
  Country: None (occurrence: None)
  Receive Date: 20120511
  Receipt Date: 20120508
  Transmission Date: 20120825
  Serious: Yes (Hospitalization, Disabling, Other)
  Sender: FDA-Public Use
  Company Number: US-PFIZER INC-2012095647

PATIENT
  Sex: Female
  Weight: 79.365 kg

DRUGS (7)
  1. AMARYL [Concomitant]
     Indication: DIABETES MELLITUS
     Dosage: 40 MG, DAILY
  2. METFORMIN [Concomitant]
     Indication: DIABETES MELLITUS
     Dosage: 1000 MG, 2X/DAY
  3. MICRO-K [Concomitant]
     Indication: HYPERTENSION
     Dosage: 10 MEQ, UNK
  4. LANTUS [Concomitant]
     Indication: DIABETES MELLITUS
     Dosage: 20-30 UNITS DAILY
  5. CAPTOPRIL [Concomitant]
     Indication: HYPERTENSION
     Dosage: 50 MG, 2X/DAY
  6. LYRICA [Suspect]
     Indication: FIBROMYALGIA
     Dosage: 50 MG, 2X/DAY
     Route: 048
     Dates: start: 20060101
  7. LASIX [Concomitant]
     Indication: HYPERTENSION
     Dosage: 20 MG, DAILY

REACTIONS (2)
  - MENINGITIS [None]
  - COMA [None]
